FAERS Safety Report 24636981 (Version 1)
Quarter: 2024Q4

REPORT INFORMATION
  Report Type: Spontaneous
  Country: PL (occurrence: PL)
  Receive Date: 20241119
  Receipt Date: 20241119
  Transmission Date: 20250115
  Serious: Yes (Hospitalization)
  Sender: OXFORD PHARMACEUTICALS, LLC
  Company Number: PL-Oxford Pharmaceuticals, LLC-2165349

PATIENT
  Age: 38 Year
  Sex: Female

DRUGS (4)
  1. SERTRALINE HYDROCHLORIDE [Suspect]
     Active Substance: SERTRALINE HYDROCHLORIDE
     Indication: Product used for unknown indication
  2. METAMIZOLE [Suspect]
     Active Substance: METAMIZOLE
  3. GOSERELIN [Suspect]
     Active Substance: GOSERELIN
  4. KETOPROFEN [Suspect]
     Active Substance: KETOPROFEN

REACTIONS (4)
  - Drug interaction [Unknown]
  - Dry mouth [Unknown]
  - Dry eye [Unknown]
  - Vomiting [Unknown]
